FAERS Safety Report 5249427-9 (Version None)
Quarter: 2007Q1

REPORT INFORMATION
  Report Type: 
  Country: None (occurrence: None)
  Receive Date: 20070228
  Receipt Date: 20061020
  Transmission Date: 20070707
  Serious: No
  Sender: FDA-Public Use
  Company Number: US-GLAXOSMITHKLINE-A0624368A

PATIENT
  Age: 83 Year
  Sex: Female

DRUGS (4)
  1. VALTREX [Suspect]
     Indication: EYE INFECTION VIRAL
     Dosage: 1G THREE TIMES PER DAY
     Route: 048
  2. NORVASC [Concomitant]
  3. ASPIRIN [Concomitant]
  4. VITAMINS [Concomitant]

REACTIONS (1)
  - DIZZINESS [None]
